FAERS Safety Report 17039499 (Version 2)
Quarter: 2020Q1

REPORT INFORMATION
  Report Type: Spontaneous
  Country: US (occurrence: US)
  Receive Date: 20191115
  Receipt Date: 20200226
  Transmission Date: 20200409
  Serious: Yes (Other)
  Sender: FDA-Public Use
  Company Number: US-SHIRE-US201938595

PATIENT
  Sex: Male

DRUGS (2)
  1. SULFASALAZINE. [Concomitant]
     Active Substance: SULFASALAZINE
     Indication: PRODUCT USED FOR UNKNOWN INDICATION
  2. LIALDA [Suspect]
     Active Substance: MESALAMINE
     Indication: PRODUCT USED FOR UNKNOWN INDICATION
     Dosage: 4 DOSAGE FORM, 1X/DAY:QD, BY MOUTH
     Route: 050
     Dates: start: 201905, end: 201907

REACTIONS (2)
  - Product administration interrupted [Unknown]
  - Haemorrhage [Recovering/Resolving]
